FAERS Safety Report 4610248-9 (Version None)
Quarter: 2005Q1

REPORT INFORMATION
  Report Type: 
  Country: None (occurrence: None)
  Receive Date: 20050310
  Receipt Date: 20050301
  Transmission Date: 20050727
  Serious: Yes (Hospitalization)
  Sender: FDA-Public Use
  Company Number: 2005-00455

PATIENT
  Age: 81 Year
  Sex: Male

DRUGS (1)
  1. IMMUCYST (BCG - IT (CONNAUGHT)),AVENTIS PASTEUR LTD. [Suspect]
     Indication: BLADDER CANCER
     Dosage: I.VES., BLADDER
     Route: 043
     Dates: start: 20000101

REACTIONS (10)
  - ASTHENIA [None]
  - CYANOSIS [None]
  - DYSURIA [None]
  - INTERSTITIAL LUNG DISEASE [None]
  - NIGHT SWEATS [None]
  - PLEURITIC PAIN [None]
  - PNEUMONITIS [None]
  - PULMONARY GRANULOMA [None]
  - PULMONARY TUBERCULOSIS [None]
  - RALES [None]
